FAERS Safety Report 5099149-2 (Version None)
Quarter: 2006Q3

REPORT INFORMATION
  Report Type: 
  Country: None (occurrence: None)
  Receive Date: 20060731
  Receipt Date: 20060525
  Transmission Date: 20061208
  Serious: Yes (Hospitalization)
  Sender: FDA-Public Use
  Company Number: 217070

PATIENT
  Age: 47 Year
  Sex: Male

DRUGS (1)
  1. RITUXAN [Suspect]
     Indication: NON-HODGKIN'S LYMPHOMA
     Dosage: 800 UG, UNK; INTRAVENOUS
     Route: 042
     Dates: start: 20050819

REACTIONS (3)
  - ANAEMIA [None]
  - CHILLS [None]
  - INFUSION RELATED REACTION [None]
